FAERS Safety Report 7934489-8 (Version None)
Quarter: 2011Q4

REPORT INFORMATION
  Report Type: 
  Country: None (occurrence: None)
  Receive Date: 20111122
  Receipt Date: 20111114
  Transmission Date: 20120403
  Serious: Yes (Other)
  Sender: FDA-Public Use
  Company Number: GR-GLAXOSMITHKLINE-B0764036A

PATIENT
  Age: 59 Year
  Sex: Female

DRUGS (1)
  1. PAZOPANIB [Suspect]
     Indication: RENAL CELL CARCINOMA
     Route: 065
     Dates: start: 20110701, end: 20111001

REACTIONS (4)
  - ASCITES [None]
  - ABDOMINAL PAIN [None]
  - COLITIS [None]
  - DIARRHOEA [None]
